FAERS Safety Report 15952597 (Version 2)
Quarter: 2019Q1

REPORT INFORMATION
  Report Type: Spontaneous
  Country: CN (occurrence: CN)
  Receive Date: 20190211
  Receipt Date: 20190214
  Transmission Date: 20190417
  Serious: Yes (Other)
  Sender: FDA-Public Use
  Company Number: CN-BAXTER-2019BAX002875

PATIENT
  Age: 47 Year
  Sex: Female
  Weight: 46 kg

DRUGS (6)
  1. SODIUM CHLORIDE. [Suspect]
     Active Substance: SODIUM CHLORIDE
     Indication: MEDICATION DILUTION
     Dosage: SOLVENT WITH ENDOXAN
     Route: 042
     Dates: start: 20190105, end: 20190105
  2. GLUCOSE [Suspect]
     Active Substance: DEXTROSE
     Dosage: SOLVENT WITH PACLITAXEL LIPOSOME FOR 2.5 HOURS AWAY FROM LIGHT
     Route: 041
     Dates: start: 20190105, end: 20190105
  3. GLUCOSE [Suspect]
     Active Substance: DEXTROSE
     Indication: MEDICATION DILUTION
     Dosage: SOLVENT WITH PACLITAXEL LIPOSOME FOR 30 MIN AWAY FROM LIGHT
     Route: 041
     Dates: start: 20190105, end: 20190105
  4. ENDOXAN [Suspect]
     Active Substance: CYCLOPHOSPHAMIDE
     Indication: BREAST CANCER
     Route: 042
     Dates: start: 20190105, end: 20190105
  5. LIPOSOME [Suspect]
     Active Substance: PACLITAXEL
     Dosage: FOR 30 MIN AWAY FROM LIGHT
     Route: 041
     Dates: start: 20190105, end: 20190105
  6. LIPOSOME [Suspect]
     Active Substance: PACLITAXEL
     Indication: BREAST CANCER
     Dosage: FOR 2.5H AWAY FROM LIGHT
     Route: 041
     Dates: start: 20190105, end: 20190105

REACTIONS (1)
  - Bone marrow failure [Unknown]

NARRATIVE: CASE EVENT DATE: 20190114
